FAERS Safety Report 18469467 (Version 2)
Quarter: 2020Q4

REPORT INFORMATION
  Report Type: Spontaneous
  Country: DE (occurrence: DE)
  Receive Date: 20201105
  Receipt Date: 20201120
  Transmission Date: 20210114
  Serious: Yes (Other)
  Sender: FDA-Public Use
  Company Number: DE-BAYER-2020-228069

PATIENT
  Age: 38 Year
  Sex: Male
  Weight: 72 kg

DRUGS (2)
  1. VITRAKVI [Suspect]
     Active Substance: LAROTRECTINIB
     Indication: NEUROENDOCRINE CARCINOMA OF PROSTATE
     Dosage: 5 ML, BID
     Route: 048
     Dates: start: 202007, end: 202010
  2. VITRAKVI [Suspect]
     Active Substance: LAROTRECTINIB
     Indication: METASTASES TO LIVER

REACTIONS (5)
  - Metastases to liver [None]
  - Paraesthesia [Recovered/Resolved]
  - Neuroendocrine carcinoma of prostate [None]
  - Hypoaesthesia [Recovered/Resolved]
  - Off label use [None]

NARRATIVE: CASE EVENT DATE: 202007
